FAERS Safety Report 12482830 (Version 1)
Quarter: 2016Q2

REPORT INFORMATION
  Report Type: Spontaneous
  Country: US (occurrence: US)
  Receive Date: 20160620
  Receipt Date: 20160620
  Transmission Date: 20160815
  Serious: No
  Sender: FDA-Public Use
  Company Number: US-ACTELION-A-US2016-136883

PATIENT
  Age: 61 Year
  Sex: Female

DRUGS (12)
  1. ONDANSETRON [Concomitant]
     Active Substance: ONDANSETRON
  2. ZANTAC [Concomitant]
     Active Substance: RANITIDINE HYDROCHLORIDE
  3. OPSUMIT [Suspect]
     Active Substance: MACITENTAN
     Indication: PULMONARY ARTERIAL HYPERTENSION
     Dosage: 10 MG, QD
     Route: 048
     Dates: start: 20150916
  4. RENVELA [Concomitant]
     Active Substance: SEVELAMER CARBONATE
  5. OMEPRAZOLE. [Concomitant]
     Active Substance: OMEPRAZOLE
  6. MECLIZINE [Concomitant]
     Active Substance: MECLIZINE HYDROCHLORIDE
  7. SPS [Concomitant]
     Active Substance: SODIUM POLYSTYRENE SULFONATE
  8. WARFARIN [Concomitant]
     Active Substance: WARFARIN
  9. HYDROMORPHONE [Concomitant]
     Active Substance: HYDROMORPHONE
  10. INDERAL [Suspect]
     Active Substance: PROPRANOLOL HYDROCHLORIDE
     Indication: PRODUCT USED FOR UNKNOWN INDICATION
     Route: 065
  11. TRAZODONE [Concomitant]
     Active Substance: TRAZODONE HYDROCHLORIDE
  12. LAMOTRIGINE. [Concomitant]
     Active Substance: LAMOTRIGINE

REACTIONS (7)
  - Blood pressure systolic decreased [Unknown]
  - Pain in extremity [Unknown]
  - Vertigo [Unknown]
  - Condition aggravated [Unknown]
  - Muscular weakness [Unknown]
  - Dyspnoea [Unknown]
  - Migraine [Unknown]

NARRATIVE: CASE EVENT DATE: 20160520
